FAERS Safety Report 8772187 (Version 2)
Quarter: 2012Q4

REPORT INFORMATION
  Report Type: 
  Country: US (occurrence: US)
  Receive Date: 20120906
  Receipt Date: 20120927
  Transmission Date: 20130627
  Serious: No
  Sender: FDA-Public Use
  Company Number: US-BIOGENIDEC-2012BI035750

PATIENT
  Sex: Female

DRUGS (14)
  1. AVONEX [Suspect]
     Indication: MULTIPLE SCLEROSIS
     Route: 030
  2. AMPYRA [Concomitant]
     Indication: MULTIPLE SCLEROSIS
     Route: 048
     Dates: start: 20120417
  3. VITAMIN B COMPLEX [Concomitant]
  4. CALCIUM [Concomitant]
  5. COUMADIN [Concomitant]
  6. DULCOLAX [Concomitant]
  7. LISINOPRIL [Concomitant]
  8. METAMUCIL [Concomitant]
  9. MIRALAX [Concomitant]
  10. MULTIVITAMIN [Concomitant]
  11. NEURONTIN [Concomitant]
  12. OMEGA-3 [Concomitant]
  13. PREDNISONE [Concomitant]
  14. TEGRETOL [Concomitant]

REACTIONS (2)
  - Abasia [Unknown]
  - Mobility decreased [Unknown]
